FAERS Safety Report 18128862 (Version 1)
Quarter: 2020Q3

REPORT INFORMATION
  Report Type: Spontaneous
  Country: US (occurrence: US)
  Receive Date: 20200807
  Receipt Date: 20200807
  Transmission Date: 20201103
  Serious: No
  Sender: FDA-Public Use
  Company Number: None

PATIENT
  Age: 62 Year
  Sex: Male
  Weight: 83 kg

DRUGS (1)
  1. OXYCODONE (OXYCODONE HCL 5MG TAB) [Suspect]
     Active Substance: OXYCODONE HYDROCHLORIDE
     Dates: end: 20160229

REACTIONS (4)
  - Confusional state [None]
  - Sedation [None]
  - Delirium [None]
  - Mental status changes [None]

NARRATIVE: CASE EVENT DATE: 20160229
